FAERS Safety Report 14991715 (Version 2)
Quarter: 2018Q3

REPORT INFORMATION
  Report Type: Spontaneous
  Country: US (occurrence: US)
  Receive Date: 20180608
  Receipt Date: 20180926
  Transmission Date: 20181010
  Serious: Yes (Other)
  Sender: FDA-Public Use
  Company Number: US-SA-2018SA145689

PATIENT
  Age: 47 Year
  Sex: Female
  Weight: 76.6 kg

DRUGS (17)
  1. BENADRYL A [Concomitant]
     Active Substance: DIPHENHYDRAMINE HYDROCHLORIDE
     Indication: PREMEDICATION
     Dosage: 75 MG
     Route: 042
  2. CYTOMEL [Concomitant]
     Active Substance: LIOTHYRONINE SODIUM
     Indication: HYPOTHYROIDISM
     Dosage: 5 MG, QD
     Route: 048
  3. CEREZYME [Suspect]
     Active Substance: IMIGLUCERASE
     Dosage: UNK, QOW
     Route: 041
     Dates: start: 200104
  4. CEREZYME [Suspect]
     Active Substance: IMIGLUCERASE
     Dosage: 45 IU/KG
     Route: 041
     Dates: start: 200204
  5. CEREZYME [Suspect]
     Active Substance: IMIGLUCERASE
     Dosage: 30 UNK,EVERY 3 WEEKS
     Route: 041
     Dates: start: 200205
  6. CEREZYME [Suspect]
     Active Substance: IMIGLUCERASE
     Dosage: 45 UNK,EVERY 3 WEEKS
     Route: 041
     Dates: start: 2003
  7. CEREZYME [Suspect]
     Active Substance: IMIGLUCERASE
     Dosage: 60 IU/KG, QOW
     Route: 041
     Dates: start: 200401
  8. CEREZYME [Suspect]
     Active Substance: IMIGLUCERASE
     Dosage: 120 UNK,EVERY 3 WEEKS
     Route: 041
     Dates: start: 2016
  9. SIMVASTATIN. [Concomitant]
     Active Substance: SIMVASTATIN
     Indication: HYPERCHOLESTEROLAEMIA
     Dosage: 5 MG, QD
     Route: 048
  10. FUROSEMIDE. [Concomitant]
     Active Substance: FUROSEMIDE
     Dosage: 20 MG, Q12H
     Route: 048
  11. VERAPAMIL [Concomitant]
     Active Substance: VERAPAMIL HYDROCHLORIDE
     Indication: HYPERTENSION
     Dosage: 120 MCG, Q12H
     Route: 048
  12. LIALDA [Concomitant]
     Active Substance: MESALAMINE
     Indication: ANTIINFLAMMATORY THERAPY
     Dosage: 1.2 G, QD
     Route: 048
  13. CEREZYME [Suspect]
     Active Substance: IMIGLUCERASE
     Indication: GAUCHER^S DISEASE TYPE I
     Dosage: 8800 UNITS, Q3W
     Route: 041
     Dates: start: 20001023
  14. SYNTHROID [Concomitant]
     Active Substance: LEVOTHYROXINE SODIUM
     Indication: HYPOTHYROIDISM
     Dosage: 150 MCG, QD
     Route: 048
     Dates: start: 1998
  15. METOPROLOL. [Concomitant]
     Active Substance: METOPROLOL
     Indication: HYPERTENSION
     Dosage: 25 MG, QD
     Route: 048
  16. CEREZYME [Suspect]
     Active Substance: IMIGLUCERASE
     Dosage: 120 IU/KG, QOW
     Route: 041
     Dates: start: 201012
  17. VITAMIN D [Concomitant]
     Active Substance: CHOLECALCIFEROL
     Dosage: 20000 U, QW
     Route: 048

REACTIONS (20)
  - Haematocrit decreased [Unknown]
  - Urticaria [Unknown]
  - Haematuria [Recovered/Resolved]
  - Pollakiuria [Recovered/Resolved]
  - Urine leukocyte esterase positive [Unknown]
  - Pruritus [Unknown]
  - Muscle spasms [Unknown]
  - Fatigue [Unknown]
  - Urine abnormality [Unknown]
  - Blood creatinine decreased [Unknown]
  - Bone pain [Unknown]
  - Pain [Recovered/Resolved]
  - Nephrolithiasis [Recovered/Resolved]
  - Flank pain [Recovered/Resolved]
  - Red blood cell count decreased [Unknown]
  - Haemoglobin decreased [Unknown]
  - Urinary sediment present [Unknown]
  - Nuclear magnetic resonance imaging abnormal [Unknown]
  - Contusion [Unknown]
  - Colitis ulcerative [Unknown]

NARRATIVE: CASE EVENT DATE: 2003
